FAERS Safety Report 5341307-3 (Version None)
Quarter: 2007Q2

REPORT INFORMATION
  Report Type: 
  Country: None (occurrence: None)
  Receive Date: 20070530
  Receipt Date: 20070524
  Transmission Date: 20071010
  Serious: Yes (Hospitalization)
  Sender: FDA-Public Use
  Company Number: 002#8#2007-00082

PATIENT
  Age: 65 Year
  Sex: Female

DRUGS (11)
  1. OMEPRAZOLE -20MG -DELAYED RELEASE CAPSULES(OMEPRAZOLE) [Suspect]
     Indication: GASTROOESOPHAGEAL REFLUX DISEASE
     Dosage: ORAL
     Route: 048
     Dates: start: 20060101, end: 20060101
  2. DIGOXIN [Suspect]
  3. MELOXICAM [Concomitant]
  4. LISINOPRIL [Concomitant]
  5. RALOXIFENE HCL [Concomitant]
  6. ATORVASTATIN CALCIUM [Concomitant]
  7. GEMFIBROZIL [Concomitant]
  8. WARFARIN SODIUM [Concomitant]
  9. OXYBUTYNIN CHLORIDE [Concomitant]
  10. HYDROCHLOROTHIAZIDE [Concomitant]
  11. POTASSIUM CITRATE [Concomitant]

REACTIONS (11)
  - ASTHENIA [None]
  - BALANCE DISORDER [None]
  - CARDIAC MURMUR [None]
  - DRUG INTERACTION [None]
  - EXTRASYSTOLES [None]
  - METABOLIC DISORDER [None]
  - NAUSEA [None]
  - RESPIRATORY RATE INCREASED [None]
  - THERAPEUTIC AGENT TOXICITY [None]
  - VISUAL DISTURBANCE [None]
  - VOMITING [None]
